FAERS Safety Report 14974920 (Version 2)
Quarter: 2018Q2

REPORT INFORMATION
  Report Type: Report from Study
  Country: GB (occurrence: GB)
  Receive Date: 20180605
  Receipt Date: 20180621
  Transmission Date: 20180711
  Serious: Yes (Hospitalization, Other)
  Sender: FDA-Public Use
  Company Number: GB-JNJFOC-20180525270

PATIENT
  Age: 67 Year
  Sex: Female

DRUGS (3)
  1. NAPROXEN. [Concomitant]
     Active Substance: NAPROXEN
     Route: 065
  2. STELARA [Suspect]
     Active Substance: USTEKINUMAB
     Indication: PSORIATIC ARTHROPATHY
     Dosage: 0.5 ML
     Route: 058
     Dates: start: 20170605
  3. CALCIUM [Concomitant]
     Active Substance: CALCIUM
     Route: 065

REACTIONS (4)
  - Psoriatic arthropathy [Unknown]
  - Volvulus [Not Recovered/Not Resolved]
  - Lower respiratory tract infection [Unknown]
  - Erythema [Unknown]

NARRATIVE: CASE EVENT DATE: 201805
